FAERS Safety Report 5262349-2 (Version None)
Quarter: 2007Q1

REPORT INFORMATION
  Report Type: 
  Country: None (occurrence: None)
  Receive Date: 20070308
  Receipt Date: 20070308
  Transmission Date: 20070707
  Serious: No
  Sender: FDA-Public Use
  Company Number: None

PATIENT
  Age: 29 Year
  Sex: Male
  Weight: 91.6266 kg

DRUGS (1)
  1. ARIPIPRAZOLE [Suspect]
     Dosage: 10MG DAILY  PO

REACTIONS (2)
  - HYPOAESTHESIA [None]
  - PARAESTHESIA [None]
